FAERS Safety Report 8311331-7 (Version None)
Quarter: 2012Q2

REPORT INFORMATION
  Report Type: 
  Country: None (occurrence: None)
  Receive Date: 20120425
  Receipt Date: 20120417
  Transmission Date: 20120825
  Serious: Yes (Other)
  Sender: FDA-Public Use
  Company Number: JP-GLAXOSMITHKLINE-B0795381A

PATIENT
  Age: 13 Year
  Sex: Male

DRUGS (2)
  1. ACYCLOVIR [Suspect]
     Indication: ORAL HERPES
     Route: 048
  2. MINOCYCLINE HYDROCHLORIDE [Suspect]
     Indication: PNEUMONIA MYCOPLASMAL
     Route: 065

REACTIONS (3)
  - ERYTHEMA ANNULARE [None]
  - CONJUNCTIVAL HYPERAEMIA [None]
  - STEVENS-JOHNSON SYNDROME [None]
